FAERS Safety Report 6172818-9 (Version None)
Quarter: 2009Q2

REPORT INFORMATION
  Report Type: 
  Country: None (occurrence: None)
  Receive Date: 20090428
  Receipt Date: 20090424
  Transmission Date: 20091009
  Serious: Yes (Other)
  Sender: FDA-Public Use
  Company Number: SP02288

PATIENT
  Age: 46 Year
  Sex: Male

DRUGS (11)
  1. VISICOL [Suspect]
     Indication: COLONOSCOPY
     Dosage: 50 GM, ORAL
     Route: 048
     Dates: start: 20090220, end: 20090220
  2. AMITRIPTLINE HYDROCHLORIDE TAB [Suspect]
     Indication: DEPRESSION
     Dosage: 75 MG
     Dates: start: 20031101
  3. IMIPRAMINE HYDROCHLORIDE [Suspect]
     Indication: DEPRESSION
     Dosage: 75 MG
     Dates: start: 20031101
  4. PERPHENAZINE [Suspect]
     Indication: DEPRESSION
     Dosage: 6 MG
     Dates: start: 20031101
  5. BROMAZEPAM [Suspect]
     Indication: DEPRESSION
     Dosage: 6 MG
     Dates: start: 20031101
  6. TRAZODONE HCL [Suspect]
     Indication: DEPRESSION
     Dosage: 75 MG
     Dates: start: 20031101
  7. MIANSERIN HYDROCHLORIDE [Suspect]
     Indication: DEPRESSION
     Dosage: 30 MG
     Dates: start: 20031101
  8. FLUNITRAZEPAM [Suspect]
     Indication: DEPRESSION
     Dosage: 2 MG
     Dates: start: 20031101
  9. CHLORPROMAZINE [Suspect]
     Indication: DEPRESSION
     Dosage: 12.5 MG
     Dates: start: 20031101
  10. MAGNESIUM OXIDE [Concomitant]
  11. SENNOSIDE [Concomitant]

REACTIONS (4)
  - DELIRIUM [None]
  - FALL [None]
  - GAIT DISTURBANCE [None]
  - LOSS OF CONSCIOUSNESS [None]
